FAERS Safety Report 15772956 (Version 1)
Quarter: 2018Q4

REPORT INFORMATION
  Report Type: Spontaneous
  Country: DE (occurrence: DE)
  Receive Date: 20181228
  Receipt Date: 20181228
  Transmission Date: 20190205
  Serious: Yes (Death, Hospitalization)
  Sender: FDA-Public Use
  Company Number: DE-ANIPHARMA-2018-DE-000207

PATIENT
  Age: 68 Year
  Sex: Male

DRUGS (2)
  1. ATACAND HCT [Suspect]
     Active Substance: CANDESARTAN CILEXETIL\HYDROCHLOROTHIAZIDE
     Indication: HYPERTENSION
     Dosage: 0.5 DOSAGE FORM DALILY
     Route: 048
     Dates: start: 201109, end: 201612
  2. RAMIPRIL. [Suspect]
     Active Substance: RAMIPRIL
     Dosage: 1 DF DAILY
     Route: 048
     Dates: start: 200809, end: 200909

REACTIONS (2)
  - Lip squamous cell carcinoma [Fatal]
  - Death [Fatal]

NARRATIVE: CASE EVENT DATE: 201612
